FAERS Safety Report 8010668-9 (Version None)
Quarter: 2011Q4

REPORT INFORMATION
  Report Type: 
  Country: None (occurrence: None)
  Receive Date: 20111228
  Receipt Date: 20111227
  Transmission Date: 20120403
  Serious: Yes (Death, Other)
  Sender: FDA-Public Use
  Company Number: PHHY2011DE69790

PATIENT
  Sex: Male

DRUGS (9)
  1. ONBREZ [Suspect]
     Dosage: 300 UG, QD
     Dates: start: 20110101
  2. BUDIAIR [Concomitant]
  3. PROCORALAN [Concomitant]
     Dosage: 1.5 DF, QD
  4. INSPRA [Concomitant]
     Dosage: 1 DF, QD
  5. CANDESARTAN CILEXETIL [Concomitant]
     Dosage: 1 DF, QD
  6. TORSEMIDE [Concomitant]
     Dosage: 0.5 DF, QD
  7. SPIRIVA [Concomitant]
  8. ONBREZ [Suspect]
     Dosage: 150 UG, QD
  9. CARVEDILOL [Concomitant]
     Dosage: 1 DF, BID

REACTIONS (3)
  - ALANINE AMINOTRANSFERASE INCREASED [None]
  - DEATH [None]
  - GAMMA-GLUTAMYLTRANSFERASE INCREASED [None]
